FAERS Safety Report 7627716-8 (Version None)
Quarter: 2011Q3

REPORT INFORMATION
  Report Type: 
  Country: None (occurrence: None)
  Receive Date: 20110721
  Receipt Date: 20081002
  Transmission Date: 20111222
  Serious: Yes (Other)
  Sender: FDA-Public Use
  Company Number: DE-GENENTECH-321654

PATIENT
  Age: 85 Year
  Sex: Female

DRUGS (1)
  1. LUCENTIS [Suspect]
     Indication: MACULAR DEGENERATION
     Dosage: UNK
     Route: 031
     Dates: start: 20080409

REACTIONS (6)
  - VISUAL ACUITY REDUCED [None]
  - INFLUENZA [None]
  - FATIGUE [None]
  - INJECTION SITE PAIN [None]
  - CONJUNCTIVITIS [None]
  - LACRIMATION INCREASED [None]
